FAERS Safety Report 15786221 (Version 2)
Quarter: 2019Q1

REPORT INFORMATION
  Report Type: Spontaneous
  Country: US (occurrence: US)
  Receive Date: 20190103
  Receipt Date: 20190222
  Transmission Date: 20190417
  Serious: No
  Sender: FDA-Public Use
  Company Number: US-ASTRAZENECA-2018SF67351

PATIENT
  Age: 28890 Day
  Sex: Female

DRUGS (1)
  1. BEVESPI AEROSPHERE [Suspect]
     Active Substance: FORMOTEROL FUMARATE\GLYCOPYRROLATE
     Indication: DYSPNOEA
     Dosage: ONE PUFF TWICE DAILY, 9MCG/4.8MCG
     Route: 055
     Dates: start: 20181210

REACTIONS (7)
  - Device failure [Unknown]
  - Product use in unapproved indication [Unknown]
  - Device defective [Unknown]
  - Intentional product misuse [Unknown]
  - Fatigue [Unknown]
  - Off label use [Unknown]
  - Wrong technique in product usage process [Unknown]

NARRATIVE: CASE EVENT DATE: 20181210
